FAERS Safety Report 23917258 (Version 2)
Quarter: 2024Q2

REPORT INFORMATION
  Report Type: Spontaneous
  Country: US (occurrence: US)
  Receive Date: 20240529
  Receipt Date: 20240626
  Transmission Date: 20240716
  Serious: No
  Sender: FDA-Public Use
  Company Number: US-Blueprint Medicines Corporation-3689

PATIENT
  Sex: Female

DRUGS (2)
  1. AYVAKIT [Suspect]
     Active Substance: AVAPRITINIB
     Indication: Systemic mastocytosis
     Route: 065
  2. AYVAKIT [Suspect]
     Active Substance: AVAPRITINIB
     Route: 065
     Dates: start: 20240409

REACTIONS (9)
  - Full blood count abnormal [Unknown]
  - Vomiting [Unknown]
  - Ageusia [Unknown]
  - Contusion [Unknown]
  - Peripheral swelling [Unknown]
  - Swelling face [Unknown]
  - Diarrhoea [Unknown]
  - Muscle spasms [Unknown]
  - White blood cell count abnormal [Unknown]
